FAERS Safety Report 17247443 (Version 2)
Quarter: 2020Q4

REPORT INFORMATION
  Report Type: Spontaneous
  Country: US (occurrence: US)
  Receive Date: 20200108
  Receipt Date: 20201023
  Transmission Date: 20210113
  Serious: Yes (Other)
  Sender: FDA-Public Use
  Company Number: US-PFIZER INC-2020007649

PATIENT
  Age: 67 Year
  Sex: Female
  Weight: 68.04 kg

DRUGS (1)
  1. IBRANCE [Suspect]
     Active Substance: PALBOCICLIB
     Indication: BREAST CANCER METASTATIC
     Dosage: 125 MG, CYCLIC, (125MG BY MOUTH, FOR 21 DAYS, OFF FOR 7 DAYS)
     Route: 048
     Dates: start: 2016

REACTIONS (3)
  - Cerebrovascular accident [Unknown]
  - Hypertension [Unknown]
  - Somnolence [Not Recovered/Not Resolved]

NARRATIVE: CASE EVENT DATE: 2016
